FAERS Safety Report 8617188-9 (Version None)
Quarter: 2012Q3

REPORT INFORMATION
  Report Type: 
  Country: None (occurrence: None)
  Receive Date: 20120823
  Receipt Date: 20120810
  Transmission Date: 20120928
  Serious: No
  Sender: FDA-Public Use
  Company Number: US-ASTRAZENECA-2012SE56588

PATIENT
  Age: 59 Year
  Sex: Male
  Weight: 97.5 kg

DRUGS (2)
  1. NEXIUM [Suspect]
     Indication: GASTROOESOPHAGEAL REFLUX DISEASE
     Route: 048
     Dates: start: 20110101
  2. FINASTERIDE [Concomitant]
     Indication: PROSTATOMEGALY

REACTIONS (5)
  - BACK PAIN [None]
  - PROSTATOMEGALY [None]
  - DISCOMFORT [None]
  - PAIN [None]
  - DRUG DOSE OMISSION [None]
